FAERS Safety Report 5269970-6 (Version None)
Quarter: 2007Q1

REPORT INFORMATION
  Report Type: 
  Country: None (occurrence: None)
  Receive Date: 20070320
  Receipt Date: 20070309
  Transmission Date: 20070707
  Serious: Yes (Hospitalization, Other)
  Sender: FDA-Public Use
  Company Number: GB-JNJFOC-20070302674

PATIENT
  Sex: Female
  Weight: 61 kg

DRUGS (10)
  1. INFLIXIMAB [Suspect]
     Indication: RHEUMATOID ARTHRITIS
     Route: 042
  2. METHOTREXATE [Concomitant]
  3. ASPIRIN [Concomitant]
  4. CALCICHEW [Concomitant]
  5. CO-AMILOFRUSE [Concomitant]
  6. CO-CODAMOL [Concomitant]
  7. FERROUS SULFATE TAB [Concomitant]
  8. FOLIC ACID [Concomitant]
  9. LANSOPRAZOLE [Concomitant]
  10. VITAMIN B-12 [Concomitant]

REACTIONS (2)
  - HIP ARTHROPLASTY [None]
  - MOBILITY DECREASED [None]
